FAERS Safety Report 12916072 (Version 2)
Quarter: 2018Q1

REPORT INFORMATION
  Report Type: Spontaneous
  Country: US (occurrence: US)
  Receive Date: 20161104
  Receipt Date: 20180115
  Transmission Date: 20180508
  Serious: Yes (Other)
  Sender: FDA-Public Use
  Company Number: US-SA-2016SA200166

PATIENT
  Age: 51 Year
  Sex: Female
  Weight: 86 kg

DRUGS (2)
  1. TAXOTERE [Suspect]
     Active Substance: DOCETAXEL
     Indication: BREAST CANCER FEMALE
     Dosage: DOSE: 137-143 MG
     Route: 042
     Dates: start: 20160217, end: 20160217
  2. TAXOTERE [Suspect]
     Active Substance: DOCETAXEL
     Indication: BREAST CANCER FEMALE
     Dosage: DOSE: 137-143 MG
     Route: 042
     Dates: start: 20151104, end: 20151104

REACTIONS (12)
  - Alopecia [Not Recovered/Not Resolved]
  - Anxiety [Unknown]
  - Pain [Unknown]
  - Impaired quality of life [Unknown]
  - Mental disorder [Unknown]
  - Emotional distress [Unknown]
  - Psychological trauma [Unknown]
  - Impaired work ability [Unknown]
  - Hair texture abnormal [Unknown]
  - Deformity [Unknown]
  - Discomfort [Unknown]
  - Hair colour changes [Unknown]
